FAERS Safety Report 7183226-6 (Version None)
Quarter: 2010Q4

REPORT INFORMATION
  Report Type: 
  Country: None (occurrence: None)
  Receive Date: 20101222
  Receipt Date: 20100224
  Transmission Date: 20110411
  Serious: No
  Sender: FDA-Public Use
  Company Number: A0846248A

PATIENT
  Age: 40 Year
  Sex: Male

DRUGS (3)
  1. FLONASE [Suspect]
     Dosage: 1SPR TWICE PER DAY
     Route: 048
     Dates: start: 20091101, end: 20100201
  2. FLOVENT [Suspect]
     Dosage: 1PUFF PER DAY
     Route: 048
     Dates: start: 20100208
  3. NO CONCURRENT MEDICATION [Concomitant]

REACTIONS (2)
  - DRUG ADMINISTRATION ERROR [None]
  - ERUCTATION [None]
